FAERS Safety Report 7762006-4 (Version None)
Quarter: 2011Q3

REPORT INFORMATION
  Report Type: 
  Country: None (occurrence: None)
  Receive Date: 20110920
  Receipt Date: 20110907
  Transmission Date: 20111222
  Serious: Yes (Hospitalization)
  Sender: FDA-Public Use
  Company Number: JP-ELI_LILLY_AND_COMPANY-JP201108009164

PATIENT
  Sex: Female

DRUGS (4)
  1. EVISTA [Suspect]
     Indication: OSTEOPOROSIS
     Dosage: 60 MG, QD
     Route: 048
     Dates: start: 20071201, end: 20110401
  2. MOBIC [Concomitant]
     Dosage: UNK, UNKNOWN
     Route: 048
     Dates: start: 20110801, end: 20110826
  3. EVISTA [Suspect]
     Dosage: 60 MG, QD
     Route: 048
     Dates: start: 20110801, end: 20110826
  4. MOBIC [Concomitant]
     Dosage: UNK
     Route: 048
     Dates: end: 20110401

REACTIONS (2)
  - BREAST PAIN [None]
  - HOSPITALISATION [None]
